FAERS Safety Report 9934588 (Version 1)
Quarter: 2014Q1

REPORT INFORMATION
  Report Type: Report from Study
  Country: US (occurrence: US)
  Receive Date: 20140228
  Receipt Date: 20140228
  Transmission Date: 20141002
  Serious: Yes (Hospitalization)
  Sender: FDA-Public Use
  Company Number: US-ACTELION-A-US2014-95183

PATIENT
  Age: 43 Year
  Sex: Female

DRUGS (4)
  1. VENTAVIS [Suspect]
     Indication: COR PULMONALE CHRONIC
     Dosage: UNK
     Route: 055
     Dates: end: 201402
  2. VENTAVIS [Suspect]
     Dosage: UNK
     Route: 055
     Dates: start: 201402
  3. OPSUMIT [Suspect]
     Indication: COR PULMONALE CHRONIC
     Dosage: 10 MG, UNK
     Route: 048
     Dates: end: 201402
  4. OPSUMIT [Suspect]
     Dosage: 10 UNK, UNK
     Route: 048
     Dates: start: 201402

REACTIONS (1)
  - Dialysis related complication [Unknown]
